FAERS Safety Report 6776672-3 (Version None)
Quarter: 2010Q2

REPORT INFORMATION
  Report Type: 
  Country: None (occurrence: None)
  Receive Date: 20100617
  Receipt Date: 20100617
  Transmission Date: 20101027
  Serious: Yes (Hospitalization)
  Sender: FDA-Public Use
  Company Number: None

PATIENT
  Sex: Female
  Weight: 65.4 kg

DRUGS (2)
  1. CISPLATIN [Suspect]
     Dosage: 127 MG
     Dates: end: 20100604
  2. TAXOL [Suspect]
     Dosage: 229 MG
     Dates: end: 20100603

REACTIONS (11)
  - ABDOMINAL PAIN [None]
  - ATELECTASIS [None]
  - CONSTIPATION [None]
  - COUGH [None]
  - HYPERHIDROSIS [None]
  - HYPOVENTILATION [None]
  - OXYGEN SATURATION DECREASED [None]
  - PLEURAL EFFUSION [None]
  - PYELOCALIECTASIS [None]
  - RESPIRATORY RATE INCREASED [None]
  - SMALL INTESTINAL OBSTRUCTION [None]
